FAERS Safety Report 5065032-1 (Version None)
Quarter: 2006Q3

REPORT INFORMATION
  Report Type: 
  Country: None (occurrence: None)
  Receive Date: 20060726
  Receipt Date: 20060717
  Transmission Date: 20061208
  Serious: Yes (Death, Other)
  Sender: FDA-Public Use
  Company Number: 2006-DE-03193GD

PATIENT
  Age: 57 Year
  Sex: Female

DRUGS (2)
  1. PREDNISONE TAB [Suspect]
     Indication: SYSTEMIC SCLEROSIS
     Dosage: 5 MG
  2. METHOTREXATE [Concomitant]

REACTIONS (8)
  - CARDIAC FAILURE [None]
  - LEFT VENTRICULAR FAILURE [None]
  - LOOSE TOOTH [None]
  - OSTEOARTHRITIS [None]
  - RESORPTION BONE INCREASED [None]
  - SKIN ULCER [None]
  - TELANGIECTASIA [None]
  - TEMPOROMANDIBULAR JOINT SYNDROME [None]
